FAERS Safety Report 19488579 (Version 1)
Quarter: 2021Q3

REPORT INFORMATION
  Report Type: Spontaneous
  Country: US (occurrence: US)
  Receive Date: 20210702
  Receipt Date: 20210702
  Transmission Date: 20211014
  Serious: Yes (Other)
  Sender: FDA-Public Use
  Company Number: NVSC2021US145067

PATIENT
  Age: 64 Year
  Sex: Male

DRUGS (2)
  1. TRAMETINIB [Suspect]
     Active Substance: TRAMETINIB
     Indication: LUNG ADENOCARCINOMA
     Dosage: 2 MG, QD (3 CYCLES)
     Route: 048
  2. DABRAFENIB [Suspect]
     Active Substance: DABRAFENIB
     Indication: LUNG ADENOCARCINOMA
     Dosage: 150 MG, BID (3 CYCLES)
     Route: 048

REACTIONS (2)
  - Thrombocytopenia [Unknown]
  - Drug intolerance [Unknown]
